FAERS Safety Report 21081458 (Version 1)
Quarter: 2022Q3

REPORT INFORMATION
  Report Type: Spontaneous
  Country: CN (occurrence: CN)
  Receive Date: 20220714
  Receipt Date: 20220714
  Transmission Date: 20221027
  Serious: Yes (Other)
  Sender: FDA-Public Use
  Company Number: None

PATIENT
  Age: 49 Year
  Sex: Female
  Weight: 46 kg

DRUGS (8)
  1. CYCLOPHOSPHAMIDE [Suspect]
     Active Substance: CYCLOPHOSPHAMIDE
     Indication: Invasive ductal breast carcinoma
     Dosage: 0.85 G, QD, DOSAGE FORM- INJECTION, ROUTE- DISPOSABLE INTRAVENOUS DRIP, CYCLOPHOSPHAMIDE (0.85 G) +
     Route: 041
     Dates: start: 20220617, end: 20220617
  2. CYCLOPHOSPHAMIDE [Suspect]
     Active Substance: CYCLOPHOSPHAMIDE
     Indication: Hormone receptor positive breast cancer
  3. CYCLOPHOSPHAMIDE [Suspect]
     Active Substance: CYCLOPHOSPHAMIDE
     Indication: HER2 protein overexpression
  4. SODIUM CHLORIDE [Suspect]
     Active Substance: SODIUM CHLORIDE
     Indication: Medication dilution
     Dosage: 100 ML, QD, DOSAGE FORM- INJECTION, ROUTE- DISPOSABLE INTRAVENOUS DRIP, CYCLOPHOSPHAMIDE (0.85 G) +
     Route: 041
     Dates: start: 20220617, end: 20220617
  5. DEXTROSE MONOHYDRATE [Suspect]
     Active Substance: DEXTROSE MONOHYDRATE
     Indication: Medication dilution
     Dosage: 250 ML, QD, DOSAGE FORM- INJECTION, ROUTE- DISPOSABLE INTRAVENOUS DRIP, PIRARUBICIN HYDROCHLORIDE (7
     Route: 041
     Dates: start: 20220617, end: 20220617
  6. PIRARUBICIN HYDROCHLORIDE [Suspect]
     Active Substance: PIRARUBICIN HYDROCHLORIDE
     Indication: Invasive ductal breast carcinoma
     Dosage: 70 MG, QD, DOSAGE FORM- POWDER, ROUTE- DISPOSABLE INTRAVENOUS DRIP, PIRARUBICIN HYDROCHLORIDE (70 MG
     Route: 041
     Dates: start: 20220617, end: 20220617
  7. PIRARUBICIN HYDROCHLORIDE [Suspect]
     Active Substance: PIRARUBICIN HYDROCHLORIDE
     Indication: Hormone receptor positive breast cancer
  8. PIRARUBICIN HYDROCHLORIDE [Suspect]
     Active Substance: PIRARUBICIN HYDROCHLORIDE
     Indication: HER2 protein overexpression

REACTIONS (2)
  - White blood cell count decreased [Unknown]
  - Neutrophil count decreased [Unknown]

NARRATIVE: CASE EVENT DATE: 20220707
